FAERS Safety Report 25657065 (Version 2)
Quarter: 2025Q3

REPORT INFORMATION
  Report Type: Spontaneous
  Country: CN (occurrence: CN)
  Receive Date: 20250808
  Receipt Date: 20250822
  Transmission Date: 20251020
  Serious: Yes (Hospitalization)
  Sender: ROCHE
  Company Number: CN-002147023-NVSC2025CN123635

PATIENT
  Age: 29 Year
  Sex: Male

DRUGS (1)
  1. RANIBIZUMAB [Suspect]
     Active Substance: RANIBIZUMAB
     Indication: Choroidal neovascularisation
     Route: 065
     Dates: start: 20250730

REACTIONS (3)
  - Macular hole [Unknown]
  - Macular ischaemia [Unknown]
  - Retinal infarction [Unknown]

NARRATIVE: CASE EVENT DATE: 20250731
